FAERS Safety Report 5568616-7 (Version None)
Quarter: 2007Q4

REPORT INFORMATION
  Report Type: 
  Country: None (occurrence: None)
  Receive Date: 20071130
  Receipt Date: 20061011
  Transmission Date: 20080405
  Serious: Yes (Other)
  Sender: FDA-Public Use
  Company Number: WAES 0606USA04925

PATIENT
  Age: 77 Year
  Sex: Female

DRUGS (6)
  1. FOSAMAX [Suspect]
     Indication: OSTEOPOROSIS
     Dosage: 70 MG WKY PO
     Route: 048
  2. FOSAMAX [Suspect]
     Indication: SCOLIOSIS
     Dosage: 70 MG WKY PO
     Route: 048
  3. FOSAMAX [Suspect]
     Indication: OSTEOPOROSIS
     Dosage: UNK/DAILY/PO
     Route: 048
     Dates: end: 20030101
  4. FOSAMAX [Suspect]
     Indication: SCOLIOSIS
     Dosage: UNK/DAILY/PO
     Route: 048
     Dates: end: 20030101
  5. THERAPY UNSPECIFIED [Concomitant]
  6. ASPIRIN [Concomitant]

REACTIONS (5)
  - HYPOAESTHESIA ORAL [None]
  - INTENTIONAL DRUG MISUSE [None]
  - ORAL PAIN [None]
  - OSTEONECROSIS [None]
  - TOOTH FRACTURE [None]
